FAERS Safety Report 6094476-4 (Version None)
Quarter: 2009Q1

REPORT INFORMATION
  Report Type: 
  Country: None (occurrence: None)
  Receive Date: 20090224
  Receipt Date: 20090220
  Transmission Date: 20090719
  Serious: Yes (Death, Hospitalization)
  Sender: FDA-Public Use
  Company Number: 2008SP019259

PATIENT
  Age: 46 Year
  Sex: Female
  Weight: 63 kg

DRUGS (5)
  1. TEMODAL [Suspect]
     Indication: GLIOBLASTOMA
     Dosage: 125 MG; QD; PO
     Route: 048
     Dates: start: 20080601, end: 20080905
  2. CORTICOSTEROID NOS (CORTICOSTEROID NOS) [Suspect]
     Indication: CEREBRAL DISORDER
  3. CORTICOSTEROID NOS (CORTICOSTEROID NOS) [Suspect]
     Indication: NEOPLASM
  4. LAMICTAL [Suspect]
     Indication: DRUG USE FOR UNKNOWN INDICATION
     Dosage: 100 MG; QD; PO
     Route: 048
     Dates: start: 20080501, end: 20080910
  5. KEPPRA [Suspect]
     Indication: DRUG USE FOR UNKNOWN INDICATION
     Dosage: 1000 MG; QD; PO
     Route: 048
     Dates: start: 20080501, end: 20080915

REACTIONS (11)
  - ANAEMIA [None]
  - BLOOD DISORDER [None]
  - DEEP VEIN THROMBOSIS [None]
  - DIABETIC KETOACIDOSIS [None]
  - INTRACRANIAL PRESSURE INCREASED [None]
  - KETOACIDOSIS [None]
  - LEUKOPENIA [None]
  - LUNG DISORDER [None]
  - MULTI-ORGAN FAILURE [None]
  - NEUTROPENIA [None]
  - THROMBOCYTOPENIA [None]
